FAERS Safety Report 25543196 (Version 1)
Quarter: 2025Q3

REPORT INFORMATION
  Report Type: Report from Study
  Country: US (occurrence: US)
  Receive Date: 20250711
  Receipt Date: 20250711
  Transmission Date: 20251021
  Serious: Yes (Hospitalization)
  Sender: BAYER HEALTHCARE PHARMACEUTICALS INC.
  Company Number: US-BAYER-2025A090009

PATIENT
  Age: 20 Year
  Sex: Male

DRUGS (3)
  1. ADEMPAS [Suspect]
     Active Substance: RIOCIGUAT
     Indication: Pulmonary arterial hypertension
  2. ADEMPAS [Suspect]
     Active Substance: RIOCIGUAT
     Indication: Pulmonary arterial hypertension
     Dosage: 1 MG, TID
     Route: 048
     Dates: start: 202410
  3. OPSUMIT [Concomitant]
     Active Substance: MACITENTAN

REACTIONS (4)
  - Pain in extremity [None]
  - Asthenia [None]
  - Abdominal pain [None]
  - Dizziness [None]

NARRATIVE: CASE EVENT DATE: 20250630
